FAERS Safety Report 4339748-6 (Version None)
Quarter: 2004Q2

REPORT INFORMATION
  Report Type: 
  Country: None (occurrence: None)
  Receive Date: 20040415
  Receipt Date: 20040415
  Transmission Date: 20050107
  Serious: Yes (Hospitalization)
  Sender: FDA-Public Use
  Company Number: None

PATIENT
  Sex: Female
  Weight: 56.6996 kg

DRUGS (4)
  1. NIX [Suspect]
     Indication: LICE INFESTATION
     Dosage: SHAMPOOING AND SPRAY TREATMENTS EVERY 3-5 DAYS ON 3 PEOPLE AND A DAY AND THE
     Dates: start: 20030301, end: 20030601
  2. KWELL [Suspect]
  3. RID MOUSSE [Suspect]
  4. PEST SPRAY [Suspect]

REACTIONS (5)
  - CONVULSION [None]
  - EMOTIONAL DISORDER [None]
  - HEART RATE INCREASED [None]
  - HYPERACUSIS [None]
  - PHOTOSENSITIVITY REACTION [None]
